FAERS Safety Report 9540415 (Version 2)
Quarter: 2013Q4

REPORT INFORMATION
  Report Type: Report from Study
  Country: US (occurrence: US)
  Receive Date: 20130920
  Receipt Date: 20131002
  Transmission Date: 20140711
  Serious: Yes (Other)
  Sender: FDA-Public Use
  Company Number: US-VIIV HEALTHCARE LIMITED-A1042298B

PATIENT
  Sex: Female

DRUGS (8)
  1. ZIDOVUDINE [Suspect]
     Indication: ANTIRETROVIRAL THERAPY
     Route: 065
  2. PREZISTA [Suspect]
     Indication: ANTIRETROVIRAL THERAPY
     Dosage: 1200MG PER DAY
     Route: 048
  3. INTELENCE [Suspect]
     Indication: ANTIRETROVIRAL THERAPY
     Route: 048
  4. ISENTRESS [Suspect]
     Indication: ANTIRETROVIRAL THERAPY
     Dosage: 800MG PER DAY
     Route: 065
  5. NORVIR [Suspect]
     Indication: ANTIRETROVIRAL THERAPY
     Route: 065
  6. TRUVADA [Suspect]
     Indication: ANTIRETROVIRAL THERAPY
     Dosage: 1TAB UNKNOWN
     Route: 065
  7. APTIVUS [Suspect]
     Indication: ANTIRETROVIRAL THERAPY
     Dosage: 1000MG PER DAY
     Route: 065
  8. INSULIN ASPART [Suspect]
     Indication: GESTATIONAL DIABETES
     Route: 065

REACTIONS (2)
  - Gestational diabetes [Unknown]
  - Exposure during pregnancy [Unknown]
